FAERS Safety Report 9118308 (Version 1)
Quarter: 2013Q1

REPORT INFORMATION
  Report Type: Spontaneous
  Country: US (occurrence: None)
  Receive Date: 20130221
  Receipt Date: 20130221
  Transmission Date: 20140127
  Serious: Yes (Life-Threatening, Hospitalization)
  Sender: FDA-Public Use
  Company Number: None

PATIENT
  Age: 24 Year
  Sex: Female
  Weight: 68.58 kg

DRUGS (1)
  1. CEFEPIME [Suspect]
     Indication: INFECTION
     Dates: start: 20121207, end: 20121207

REACTIONS (1)
  - Drug hypersensitivity [None]
